FAERS Safety Report 13578712 (Version 3)
Quarter: 2022Q1

REPORT INFORMATION
  Report Type: Report from Study
  Country: US (occurrence: US)
  Receive Date: 20170524
  Receipt Date: 20220301
  Transmission Date: 20220423
  Serious: Yes (Other)
  Sender: FDA-Public Use
  Company Number: US-TEVA-772010USA

PATIENT
  Age: 57 Year
  Sex: Male

DRUGS (2)
  1. AUSTEDO [Suspect]
     Active Substance: DEUTETRABENAZINE
     Dosage: 54 MILLIGRAM DAILY;
     Route: 065
     Dates: start: 2017, end: 2017
  2. AUSTEDO [Suspect]
     Active Substance: DEUTETRABENAZINE
     Dosage: 66 MILLIGRAM DAILY; (1) 9MG AND (2) 12MG TWICE A DAY
     Route: 065
     Dates: start: 2017

REACTIONS (5)
  - Chorea [Not Recovered/Not Resolved]
  - Fall [Unknown]
  - Diarrhoea [Not Recovered/Not Resolved]
  - Product use issue [Unknown]
  - Drug ineffective [Unknown]

NARRATIVE: CASE EVENT DATE: 20170101
